FAERS Safety Report 6781288-9 (Version None)
Quarter: 2010Q2

REPORT INFORMATION
  Report Type: 
  Country: None (occurrence: None)
  Receive Date: 20100621
  Receipt Date: 20100609
  Transmission Date: 20101027
  Serious: Yes (Other)
  Sender: FDA-Public Use
  Company Number: PHHY2010US33249

PATIENT
  Sex: Female

DRUGS (9)
  1. RECLAST [Suspect]
     Indication: OSTEOPOROSIS
     Dosage: UNK
     Route: 042
     Dates: start: 20100427
  2. TYLENOL (CAPLET) [Concomitant]
  3. BENADRYL [Concomitant]
  4. PERCOCET [Concomitant]
     Route: 048
  5. TORADOL [Concomitant]
     Route: 042
  6. DEMEROL [Concomitant]
     Route: 042
  7. TRAMADOL [Concomitant]
     Indication: OSTEOARTHRITIS
     Route: 048
  8. VITAMIN D [Concomitant]
     Indication: OSTEOPOROSIS
     Route: 048
  9. PROTONIX [Concomitant]
     Indication: GASTRIC BYPASS

REACTIONS (17)
  - ACTIVITIES OF DAILY LIVING IMPAIRED [None]
  - ARTHRALGIA [None]
  - BACK PAIN [None]
  - BONE PAIN [None]
  - CHEST PAIN [None]
  - CHILLS [None]
  - CRYING [None]
  - DYSSTASIA [None]
  - INFLUENZA LIKE ILLNESS [None]
  - MALAISE [None]
  - MUSCLE SPASMS [None]
  - MYALGIA [None]
  - NAUSEA [None]
  - PAIN [None]
  - PAIN IN EXTREMITY [None]
  - TREMOR [None]
  - VOMITING [None]
